FAERS Safety Report 5785952-X (Version None)
Quarter: 2008Q2

REPORT INFORMATION
  Report Type: 
  Country: None (occurrence: None)
  Receive Date: 20080624
  Receipt Date: 20070608
  Transmission Date: 20081010
  Serious: No
  Sender: FDA-Public Use
  Company Number: US-ASTRAZENECA-2007UW13847

PATIENT
  Age: 73 Year
  Sex: Male
  Weight: 65.8 kg

DRUGS (4)
  1. PULMICORT [Suspect]
     Indication: ASTHMA
     Route: 055
  2. SEREVENT [Concomitant]
  3. MAXIDEX [Concomitant]
  4. NORVASC [Concomitant]

REACTIONS (5)
  - AGEUSIA [None]
  - ANOSMIA [None]
  - NASAL CONGESTION [None]
  - NASAL DISCOMFORT [None]
  - RHINORRHOEA [None]
